FAERS Safety Report 5147068-5 (Version None)
Quarter: 2006Q4

REPORT INFORMATION
  Report Type: 
  Country: None (occurrence: None)
  Receive Date: 20061103
  Receipt Date: 20061024
  Transmission Date: 20070319
  Serious: Yes (Hospitalization)
  Sender: FDA-Public Use
  Company Number: US016975

PATIENT
  Age: 51 Year
  Sex: Male

DRUGS (16)
  1. ARSENIC TRIOXIDE [Suspect]
     Indication: ACUTE PROMYELOCYTIC LEUKAEMIA
     Dosage: 10.725 MG QD INTRAVENOUS DRIP
     Route: 041
     Dates: start: 20051114, end: 20051224
  2. ARSENIC TRIOXIDE [Suspect]
     Indication: ACUTE PROMYELOCYTIC LEUKAEMIA
     Dosage: 10.725 MG QD INTRAVENOUS DRIP
     Route: 041
     Dates: start: 20060104, end: 20060113
  3. ARSENIC TRIOXIDE [Suspect]
     Indication: ACUTE PROMYELOCYTIC LEUKAEMIA
     Dosage: 10.725 MG QD INTRAVENOUS DRIP
     Route: 041
     Dates: start: 20060115, end: 20060123
  4. ARSENIC TRIOXIDE [Suspect]
     Indication: ACUTE PROMYELOCYTIC LEUKAEMIA
     Dosage: 10.125 MG QD INTRAVENOUS DRIP
     Route: 041
     Dates: start: 20060327, end: 20060428
  5. ARSENIC TRIOXIDE [Suspect]
     Indication: ACUTE PROMYELOCYTIC LEUKAEMIA
     Dosage: 10.65 MG QD INTRAVENOUS DRIP
     Route: 041
     Dates: start: 20060613, end: 20060714
  6. IDARUBICIN HCL [Concomitant]
  7. GABEXATE MESILATE [Concomitant]
  8. DANAPAROID SODIUM [Concomitant]
  9. FLOMOXEF SODIUM [Concomitant]
  10. ISEPAMICIN SULFATE [Concomitant]
  11. CEFTAZIDIME [Concomitant]
  12. PIPERACILLIN SODIUM [Concomitant]
  13. FAMOTIDINE [Concomitant]
  14. ALLOPURINOL [Concomitant]
  15. MECOBALAMIN [Concomitant]
  16. IRSOGLADINE MALEATE [Concomitant]

REACTIONS (4)
  - EOSINOPHIL COUNT INCREASED [None]
  - LEUKOPENIA [None]
  - RENAL IMPAIRMENT [None]
  - THROMBOCYTHAEMIA [None]
